FAERS Safety Report 18575137 (Version 1)
Quarter: 2020Q4

REPORT INFORMATION
  Report Type: Spontaneous
  Country: US (occurrence: US)
  Receive Date: 20201203
  Receipt Date: 20201203
  Transmission Date: 20210114
  Serious: Yes (Other)
  Sender: FDA-Public Use
  Company Number: US-PFIZER INC-2020473808

PATIENT
  Age: 79 Year
  Sex: Male
  Weight: 77.56 kg

DRUGS (2)
  1. BUMETANIDE. [Suspect]
     Active Substance: BUMETANIDE
     Dosage: 2 MG, 1X/DAY (2MG ONCE DAILY IN THE MORNING)
  2. ALDACTONE [Suspect]
     Active Substance: SPIRONOLACTONE
     Dosage: 12.5 MG, 1X/DAY (12.5 MG ONCE DAILY BY MOUTH)
     Route: 048

REACTIONS (1)
  - Weight decreased [Unknown]
